FAERS Safety Report 14326397 (Version 1)
Quarter: 2017Q4

REPORT INFORMATION
  Report Type: Spontaneous
  Country: US (occurrence: US)
  Receive Date: 20171226
  Receipt Date: 20171226
  Transmission Date: 20180321
  Serious: Yes (Life-Threatening, Hospitalization, Disabling)
  Sender: FDA-Public Use
  Company Number: None

PATIENT
  Age: 36 Year
  Sex: Male
  Weight: 105.75 kg

DRUGS (5)
  1. SENEXON [Concomitant]
     Active Substance: SENNOSIDES A AND B
  2. NADOLOL. [Concomitant]
     Active Substance: NADOLOL
  3. PANTOPRAZOLE [Concomitant]
     Active Substance: PANTOPRAZOLE
  4. ZEPATIER [Suspect]
     Active Substance: ELBASVIR\GRAZOPREVIR
     Indication: HEPATITIS C
     Dosage: ?          QUANTITY:14 TABLET(S);?
     Route: 048
     Dates: start: 20170612, end: 20170812
  5. SUBOXONE [Concomitant]
     Active Substance: BUPRENORPHINE HYDROCHLORIDE\NALOXONE HYDROCHLORIDE

REACTIONS (7)
  - Oesophageal varices haemorrhage [None]
  - Impaired work ability [None]
  - Liver disorder [None]
  - Platelet count decreased [None]
  - Anaemia [None]
  - Oedema [None]
  - Ascites [None]

NARRATIVE: CASE EVENT DATE: 20171027
